FAERS Safety Report 15979393 (Version 1)
Quarter: 2019Q1

REPORT INFORMATION
  Report Type: Spontaneous
  Country: US (occurrence: US)
  Receive Date: 20190217
  Receipt Date: 20190217
  Transmission Date: 20190418
  Serious: No
  Sender: FDA-Public Use
  Company Number: None

PATIENT
  Age: 52 Year
  Sex: Female
  Weight: 69.3 kg

DRUGS (2)
  1. IRRITATED EYE RELIEF [Suspect]
     Active Substance: HOMEOPATHICS
     Indication: EYE IRRITATION
     Dosage: ?          QUANTITY:2 DROP(S);?
     Route: 047
     Dates: start: 20190118, end: 20190208
  2. VITAMIN B12 [Concomitant]
     Active Substance: CYANOCOBALAMIN

REACTIONS (4)
  - Swelling of eyelid [None]
  - Eye irritation [None]
  - Scab [None]
  - Erythema [None]

NARRATIVE: CASE EVENT DATE: 20190212
